FAERS Safety Report 13192545 (Version 4)
Quarter: 2017Q1

REPORT INFORMATION
  Report Type: Spontaneous
  Country: US (occurrence: US)
  Receive Date: 20170207
  Receipt Date: 20170323
  Transmission Date: 20170428
  Serious: Yes (Other)
  Sender: FDA-Public Use
  Company Number: US-PFIZER INC-2017046077

PATIENT
  Age: 40 Year
  Sex: Female

DRUGS (1)
  1. EPINEPHRINE/LIDOCAINE HYDROCHLORIDE [Suspect]
     Active Substance: EPINEPHRINE\LIDOCAINE HYDROCHLORIDE
     Indication: ANAESTHESIA
     Dosage: UNK
     Route: 058
     Dates: start: 201612

REACTIONS (5)
  - Hypoaesthesia [Recovering/Resolving]
  - Haemorrhage [Recovering/Resolving]
  - Condition aggravated [Recovering/Resolving]
  - Discomfort [Recovering/Resolving]
  - Post procedural haemorrhage [None]
